FAERS Safety Report 5033388-1 (Version None)
Quarter: 2006Q2

REPORT INFORMATION
  Report Type: 
  Country: None (occurrence: None)
  Receive Date: 20060512
  Receipt Date: 20060427
  Transmission Date: 20061013
  Serious: No
  Sender: FDA-Public Use
  Company Number: SUS1-2006-00334

PATIENT
  Age: 52 Year
  Sex: Female
  Weight: 89.8 kg

DRUGS (18)
  1. FOSRENOL [Suspect]
     Indication: HYPERPHOSPHATAEMIA
     Dosage: 1000 MG, WITH EACH MEAL
     Dates: start: 20050601
  2. ACCUPRIL [Concomitant]
  3. ALLOPURINOL [Concomitant]
  4. CALCIUM WITH VITAMIN D (CALCIUM PHOSPHATE, CALCIUM SODIUM LACTATE, ERG [Concomitant]
  5. CATAPRES /00171101/(CLONIDINE) [Concomitant]
  6. COZAAR [Concomitant]
  7. CRESTOR /01588601/ (ROSUVASTATIN) [Concomitant]
  8. EPOGEN [Concomitant]
  9. EVISTA [Concomitant]
  10. FOLIC ACID [Concomitant]
  11. HUMULIN N [Concomitant]
  12. LASIX /00032601/(FUROSEMIDE) [Concomitant]
  13. LEVOTHROID [Concomitant]
  14. MACRODANTIN [Concomitant]
  15. PLENDIL [Concomitant]
  16. PRILOSEC [Concomitant]
  17. VITAMIN E /00110501/(TOCOPHEROL) [Concomitant]
  18. NEPHRON FA [Concomitant]

REACTIONS (2)
  - COMPUTERISED TOMOGRAM ABDOMEN ABNORMAL [None]
  - X-RAY GASTROINTESTINAL TRACT ABNORMAL [None]
